FAERS Safety Report 6050361-5 (Version None)
Quarter: 2009Q1

REPORT INFORMATION
  Report Type: 
  Country: None (occurrence: None)
  Receive Date: 20090126
  Receipt Date: 20090115
  Transmission Date: 20090719
  Serious: Yes (Other)
  Sender: FDA-Public Use
  Company Number: CN-JNJFOC-20090102985

PATIENT
  Age: 3 Year
  Sex: Male

DRUGS (2)
  1. GYNO-DAKTARIN [Suspect]
     Route: 048
  2. GYNO-DAKTARIN [Suspect]
     Indication: ACCIDENTAL EXPOSURE
     Route: 048

REACTIONS (1)
  - ACCIDENTAL EXPOSURE [None]
